FAERS Safety Report 24398195 (Version 1)
Quarter: 2024Q4

REPORT INFORMATION
  Report Type: Spontaneous
  Country: US (occurrence: US)
  Receive Date: 20241004
  Receipt Date: 20241004
  Transmission Date: 20250115
  Serious: No
  Sender: EISAI
  Company Number: US-Eisai-EC-2024-175407

PATIENT
  Age: 86 Year
  Sex: Male

DRUGS (7)
  1. LEQEMBI [Suspect]
     Active Substance: LECANEMAB-IRMB
     Indication: Product used for unknown indication
     Dosage: DOSE UNKNOWN
     Route: 042
     Dates: start: 20240827
  2. BRILINTA [Concomitant]
     Active Substance: TICAGRELOR
  3. CARVEDILOL [Concomitant]
     Active Substance: CARVEDILOL
  4. MEMANTINE [Concomitant]
     Active Substance: MEMANTINE
  5. RIVASTIGMINE [Concomitant]
     Active Substance: RIVASTIGMINE
  6. LEVOTHYROXINE [Concomitant]
     Active Substance: LEVOTHYROXINE
  7. ATORVASTATIN [Concomitant]
     Active Substance: ATORVASTATIN

REACTIONS (1)
  - Stress echocardiogram abnormal [Unknown]

NARRATIVE: CASE EVENT DATE: 20240917
